FAERS Safety Report 25647610 (Version 1)
Quarter: 2025Q3

REPORT INFORMATION
  Report Type: Report from Study
  Country: US (occurrence: US)
  Receive Date: 20250806
  Receipt Date: 20250806
  Transmission Date: 20251020
  Serious: No
  Sender: SUNOVION
  Company Number: US-SUMITOMO PHARMA SWITZERLAND GMBH-2025SPA009294

PATIENT
  Age: 66 Year
  Sex: Male

DRUGS (7)
  1. ORGOVYX [Suspect]
     Active Substance: RELUGOLIX
     Indication: Prostate cancer
     Route: 048
  2. ORGOVYX [Suspect]
     Active Substance: RELUGOLIX
     Route: 048
  3. ATORVASTATIN [Concomitant]
     Active Substance: ATORVASTATIN
  4. DILTIAZEM [Concomitant]
     Active Substance: DILTIAZEM
  5. FLONASE [Concomitant]
     Active Substance: FLUTICASONE PROPIONATE
  6. METOPROLOL SUCCINATE [Concomitant]
     Active Substance: METOPROLOL SUCCINATE
  7. TELMISARTAN [Concomitant]
     Active Substance: TELMISARTAN

REACTIONS (2)
  - Fatigue [Unknown]
  - Therapy interrupted [Recovered/Resolved]
